FAERS Safety Report 20627387 (Version 1)
Quarter: 2022Q1

REPORT INFORMATION
  Report Type: Spontaneous
  Country: US (occurrence: None)
  Receive Date: 20220323
  Receipt Date: 20220323
  Transmission Date: 20220424
  Serious: Yes (Hospitalization)
  Sender: FDA-Public Use
  Company Number: None

PATIENT
  Age: 11 Year
  Sex: Female
  Weight: 39.1 kg

DRUGS (17)
  1. CYCLOPHOSPHAMIDE [Suspect]
     Active Substance: CYCLOPHOSPHAMIDE
     Dates: end: 20220214
  2. CYTARABINE [Suspect]
     Active Substance: CYTARABINE
     Dates: end: 20220224
  3. METHOTREXATE [Suspect]
     Active Substance: METHOTREXATE
     Dates: end: 20220228
  4. ONCASPAR [Suspect]
     Active Substance: PEGASPARGASE
     Dates: end: 20220228
  5. VINCRISTINE SULFATE [Suspect]
     Active Substance: VINCRISTINE SULFATE
     Dates: end: 20220307
  6. BETAINE [Concomitant]
     Active Substance: BETAINE
  7. CYPROHEPTADINE [Concomitant]
     Active Substance: CYPROHEPTADINE
  8. DIPHENHYDRAMINE [Concomitant]
     Active Substance: DIPHENHYDRAMINE
  9. foltanx [Concomitant]
  10. HYDROXOCOBALAMIN [Concomitant]
     Active Substance: HYDROXOCOBALAMIN
  11. LEVOCARNITINE [Concomitant]
     Active Substance: LEVOCARNITINE
  12. OLANZAPINE [Concomitant]
     Active Substance: OLANZAPINE
  13. ONDANSETRON [Concomitant]
     Active Substance: ONDANSETRON
  14. OXYCODONE [Concomitant]
     Active Substance: OXYCODONE
  15. polyethylene glycon [Concomitant]
  16. sennosides-docusate [Concomitant]
  17. SULFAMETHOXAZOLE\TRIMETHOPRIM [Concomitant]
     Active Substance: SULFAMETHOXAZOLE\TRIMETHOPRIM

REACTIONS (15)
  - Neutropenia [None]
  - Blood lactic acid increased [None]
  - Nausea [None]
  - Hypersomnia [None]
  - Chills [None]
  - Urinary incontinence [None]
  - Staring [None]
  - Mobility decreased [None]
  - Antibiotic therapy [None]
  - Aphasia [None]
  - Blood pressure increased [None]
  - Tachycardia [None]
  - CSF lactate increased [None]
  - Electroencephalogram abnormal [None]
  - Magnetic resonance imaging abnormal [None]

NARRATIVE: CASE EVENT DATE: 20220311
